FAERS Safety Report 5652136-5 (Version None)
Quarter: 2008Q1

REPORT INFORMATION
  Report Type: 
  Country: None (occurrence: None)
  Receive Date: 20080304
  Receipt Date: 20080227
  Transmission Date: 20080703
  Serious: Yes (Life-Threatening, Other)
  Sender: FDA-Public Use
  Company Number: E2020-02322-SPO-PT

PATIENT
  Age: 70 Year
  Sex: Female

DRUGS (6)
  1. ARICEPT [Suspect]
     Indication: DEMENTIA ALZHEIMER'S TYPE
     Dosage: ORAL
     Route: 048
     Dates: end: 20040101
  2. PROPOFOL [Suspect]
     Indication: ANAESTHESIA
     Dosage: INTRAVENOUS (NOT OTHERWISE SPECIFIED); INTRAVENOUS (NOT OTHERWISE SPECIFIED)
     Route: 042
     Dates: start: 20040101, end: 20040101
  3. PROPOFOL [Suspect]
     Indication: ANAESTHESIA
     Dosage: INTRAVENOUS (NOT OTHERWISE SPECIFIED); INTRAVENOUS (NOT OTHERWISE SPECIFIED)
     Route: 042
     Dates: start: 20040101, end: 20040101
  4. ISOFLURANE [Suspect]
     Indication: ANAESTHESIA
     Dosage: INTRAVENOUS (NOT OTHERWISE SPECIFIED), INTRAVENOUS (NOT OTHERWISE SPECIFIED)
     Route: 042
     Dates: start: 20040101, end: 20040101
  5. ISOFLURANE [Suspect]
     Indication: ANAESTHESIA
     Dosage: INTRAVENOUS (NOT OTHERWISE SPECIFIED), INTRAVENOUS (NOT OTHERWISE SPECIFIED)
     Route: 042
     Dates: start: 20040101, end: 20040101
  6. UNSPECIFIED BENZODIAZEPINE [Concomitant]

REACTIONS (5)
  - ATRIOVENTRICULAR BLOCK [None]
  - BRADYCARDIA [None]
  - CARDIAC ARREST [None]
  - DRUG INTERACTION [None]
  - SYNCOPE VASOVAGAL [None]
